FAERS Safety Report 23820615 (Version 2)
Quarter: 2024Q3

REPORT INFORMATION
  Report Type: Report from Study
  Country: US (occurrence: US)
  Receive Date: 20240506
  Receipt Date: 20240718
  Transmission Date: 20241017
  Serious: Yes (Hospitalization, Other)
  Sender: GLAXOSMITHKLINE
  Company Number: US-GSKCCFUS-Case-01997757_AE-110910

PATIENT

DRUGS (1)
  1. MEPOLIZUMAB [Suspect]
     Active Substance: MEPOLIZUMAB
     Indication: Asthma
     Dosage: 100 MG, Q4W
     Route: 058
     Dates: start: 201811

REACTIONS (8)
  - Cardiac operation [Recovered/Resolved]
  - Breast cancer [Recovered/Resolved]
  - Mastectomy [Recovered/Resolved]
  - Urinary tract infection [Recovered/Resolved]
  - Micturition frequency decreased [Recovered/Resolved]
  - Dialysis [Recovered/Resolved]
  - Chest pain [Recovered/Resolved]
  - Product dose omission issue [Unknown]

NARRATIVE: CASE EVENT DATE: 20210901
